FAERS Safety Report 7355726-7 (Version None)
Quarter: 2011Q1

REPORT INFORMATION
  Report Type: 
  Country: None (occurrence: None)
  Receive Date: 20110316
  Receipt Date: 20110218
  Transmission Date: 20110831
  Serious: No
  Sender: FDA-Public Use
  Company Number: US-B.I. PHARMACEUTICALS,INC./RIDGEFIELD-2011-BP-06099BP

PATIENT
  Age: 88 Year
  Sex: Female

DRUGS (2)
  1. TOPROL-XL [Concomitant]
     Indication: ATRIAL FIBRILLATION
     Dates: start: 20110125
  2. PRADAXA [Suspect]
     Indication: ATRIAL FIBRILLATION
     Dosage: 300 MG
     Route: 048
     Dates: start: 20110125

REACTIONS (1)
  - WHEEZING [None]
